FAERS Safety Report 21443811 (Version 2)
Quarter: 2022Q4

REPORT INFORMATION
  Report Type: Spontaneous
  Country: US (occurrence: US)
  Receive Date: 20221012
  Receipt Date: 20221207
  Transmission Date: 20230113
  Serious: Yes (Other)
  Sender: FDA-Public Use
  Company Number: US-GLAXOSMITHKLINE-US2022144775

PATIENT
  Age: 67 Year
  Sex: Male
  Weight: 111.13 kg

DRUGS (1)
  1. TRELEGY ELLIPTA [Suspect]
     Active Substance: FLUTICASONE FUROATE\UMECLIDINIUM BROMIDE\VILANTEROL TRIFENATATE
     Indication: Asthma
     Dosage: UNK 200-62.5MCG
     Dates: start: 202001

REACTIONS (3)
  - Pneumonia [Not Recovered/Not Resolved]
  - Fatigue [Unknown]
  - Productive cough [Unknown]

NARRATIVE: CASE EVENT DATE: 20221007
